FAERS Safety Report 16492675 (Version 1)
Quarter: 2019Q2

REPORT INFORMATION
  Report Type: Report from Study
  Country: JP (occurrence: JP)
  Receive Date: 20190628
  Receipt Date: 20190628
  Transmission Date: 20190711
  Serious: Yes (Other)
  Sender: FDA-Public Use
  Company Number: PHJP2019JP007056

PATIENT
  Age: 77 Year
  Sex: Female

DRUGS (48)
  1. ARZERRA [Suspect]
     Active Substance: OFATUMUMAB
     Dosage: 2000MG, AS PER DOSAGE AND ADMINISTRATION RELATED NOTES
     Route: 041
     Dates: start: 20150305
  2. ARZERRA [Suspect]
     Active Substance: OFATUMUMAB
     Dosage: 2000MG, AS PER DOSAGE AND ADMINISTRATION RELATED NOTES
     Route: 041
     Dates: start: 20150319
  3. PREDNISOLONE. [Concomitant]
     Active Substance: PREDNISOLONE
     Dosage: 100 MG, UNK
     Route: 065
     Dates: start: 20150312
  4. ACETAMINOPHEN. [Concomitant]
     Active Substance: ACETAMINOPHEN
     Dosage: 400 MG, UNK
     Route: 065
     Dates: start: 20150326
  5. ACETAMINOPHEN. [Concomitant]
     Active Substance: ACETAMINOPHEN
     Dosage: 400 MG, UNK
     Route: 065
     Dates: start: 20150605
  6. BENA [Concomitant]
     Dosage: 50 MG, UNK
     Route: 048
     Dates: start: 20150319
  7. BENA [Concomitant]
     Dosage: 50 MG, UNK
     Route: 048
     Dates: start: 20150402
  8. ARZERRA [Suspect]
     Active Substance: OFATUMUMAB
     Dosage: 2000MG, AS PER DOSAGE AND ADMINISTRATION RELATED NOTES
     Route: 041
     Dates: start: 20150312
  9. ARZERRA [Suspect]
     Active Substance: OFATUMUMAB
     Dosage: 2000MG, AS PER DOSAGE AND ADMINISTRATION RELATED NOTES
     Route: 041
     Dates: start: 20150402
  10. PREDNISOLONE. [Concomitant]
     Active Substance: PREDNISOLONE
     Dosage: 100 MG, UNK
     Route: 065
     Dates: start: 20150402
  11. PREDNISOLONE. [Concomitant]
     Active Substance: PREDNISOLONE
     Dosage: 100 MG, UNK
     Route: 065
     Dates: start: 20150508
  12. PREDNISOLONE. [Concomitant]
     Active Substance: PREDNISOLONE
     Dosage: 100 MG, UNK
     Route: 065
     Dates: start: 20150605
  13. PREDNISOLONE. [Concomitant]
     Active Substance: PREDNISOLONE
     Dosage: 100 MG, UNK
     Route: 065
     Dates: start: 20150703
  14. BENA [Concomitant]
     Dosage: 50 MG, UNK
     Route: 048
     Dates: start: 20150226
  15. BENA [Concomitant]
     Dosage: 50 MG, UNK
     Route: 048
     Dates: start: 20150605
  16. BENA [Concomitant]
     Dosage: 50 MG, UNK
     Route: 048
     Dates: start: 20150703
  17. ARZERRA [Suspect]
     Active Substance: OFATUMUMAB
     Dosage: 2000MG, AS PER DOSAGE AND ADMINISTRATION RELATED NOTES
     Route: 041
     Dates: start: 20150326
  18. ARZERRA [Suspect]
     Active Substance: OFATUMUMAB
     Dosage: 2000MG, AS PER DOSAGE AND ADMINISTRATION RELATED NOTES
     Route: 041
     Dates: start: 20150731
  19. PREDNISOLONE. [Concomitant]
     Active Substance: PREDNISOLONE
     Dosage: 100 MG, UNK
     Route: 065
     Dates: start: 20150226
  20. PREDNISOLONE. [Concomitant]
     Active Substance: PREDNISOLONE
     Dosage: 100 MG, UNK
     Route: 065
     Dates: start: 20150326
  21. ACETAMINOPHEN. [Concomitant]
     Active Substance: ACETAMINOPHEN
     Dosage: 400 MG, UNK
     Route: 065
     Dates: start: 20150508
  22. BENA [Concomitant]
     Indication: PREMEDICATION
     Dosage: 50 MG, UNK
     Route: 048
     Dates: start: 20150219
  23. BENA [Concomitant]
     Dosage: 50 MG, UNK
     Route: 048
     Dates: start: 20150731
  24. PREDNISOLONE. [Concomitant]
     Active Substance: PREDNISOLONE
     Dosage: 100 MG, UNK
     Route: 065
     Dates: start: 20150305
  25. ACETAMINOPHEN. [Concomitant]
     Active Substance: ACETAMINOPHEN
     Dosage: 400 MG, UNK
     Route: 065
     Dates: start: 20150226
  26. ACETAMINOPHEN. [Concomitant]
     Active Substance: ACETAMINOPHEN
     Dosage: 400 MG, UNK
     Route: 065
     Dates: start: 20150409
  27. BENA [Concomitant]
     Dosage: 50 MG, UNK
     Route: 048
     Dates: start: 20150326
  28. ARZERRA [Suspect]
     Active Substance: OFATUMUMAB
     Indication: CHRONIC LYMPHOCYTIC LEUKAEMIA
     Dosage: 300MG, 200ML/HR, REDUCE INFUSION RATE TO 100ML/HR
     Route: 041
     Dates: start: 20150219
  29. PREDNISOLONE. [Concomitant]
     Active Substance: PREDNISOLONE
     Dosage: 100 MG, UNK
     Route: 065
     Dates: start: 20150319
  30. ACETAMINOPHEN. [Concomitant]
     Active Substance: ACETAMINOPHEN
     Dosage: 400 MG, UNK
     Route: 065
     Dates: start: 20150312
  31. ACETAMINOPHEN. [Concomitant]
     Active Substance: ACETAMINOPHEN
     Dosage: 400 MG, UNK
     Route: 065
     Dates: start: 20150319
  32. BENA [Concomitant]
     Dosage: 50 MG, UNK
     Route: 048
     Dates: start: 20150508
  33. ARZERRA [Suspect]
     Active Substance: OFATUMUMAB
     Dosage: 2000MG, AS PER DOSAGE AND ADMINISTRATION RELATED NOTES
     Route: 041
     Dates: start: 20150605
  34. PREDNISOLONE. [Concomitant]
     Active Substance: PREDNISOLONE
     Dosage: 100 MG, UNK
     Route: 065
     Dates: start: 20150409
  35. PREDNISOLONE. [Concomitant]
     Active Substance: PREDNISOLONE
     Dosage: 100 MG, UNK
     Route: 065
     Dates: start: 20150731
  36. ACETAMINOPHEN. [Concomitant]
     Active Substance: ACETAMINOPHEN
     Dosage: 400 MG, UNK
     Route: 065
     Dates: start: 20150305
  37. ARZERRA [Suspect]
     Active Substance: OFATUMUMAB
     Dosage: 2000MG, AS PER DOSAGE AND ADMINISTRATION RELATED NOTES
     Route: 041
     Dates: start: 20150409
  38. ARZERRA [Suspect]
     Active Substance: OFATUMUMAB
     Dosage: 2000MG, AS PER DOSAGE AND ADMINISTRATION RELATED NOTES
     Route: 041
     Dates: start: 20150508
  39. ARZERRA [Suspect]
     Active Substance: OFATUMUMAB
     Dosage: 2000MG, AS PER DOSAGE AND ADMINISTRATION RELATED NOTES
     Route: 041
     Dates: start: 20150703
  40. PREDNISOLONE. [Concomitant]
     Active Substance: PREDNISOLONE
     Indication: PREMEDICATION
     Dosage: 100 MG, UNK
     Route: 065
     Dates: start: 20150219
  41. ACETAMINOPHEN. [Concomitant]
     Active Substance: ACETAMINOPHEN
     Dosage: 400 MG, UNK
     Route: 065
     Dates: start: 20150402
  42. ACETAMINOPHEN. [Concomitant]
     Active Substance: ACETAMINOPHEN
     Dosage: 400 MG, UNK
     Route: 065
     Dates: start: 20150703
  43. ACETAMINOPHEN. [Concomitant]
     Active Substance: ACETAMINOPHEN
     Dosage: 400 MG, UNK
     Route: 065
     Dates: start: 20180731
  44. BENA [Concomitant]
     Dosage: 50 MG, UNK
     Route: 048
     Dates: start: 20150305
  45. ARZERRA [Suspect]
     Active Substance: OFATUMUMAB
     Dosage: 2000MG, AS PER DOSAGE AND ADMINISTRATION RELATED NOTES
     Route: 041
     Dates: start: 20150226
  46. ACETAMINOPHEN. [Concomitant]
     Active Substance: ACETAMINOPHEN
     Indication: PREMEDICATION
     Dosage: 400 MG, UNK
     Route: 065
     Dates: start: 20150219
  47. BENA [Concomitant]
     Dosage: 50 MG, UNK
     Route: 048
     Dates: start: 20150312
  48. BENA [Concomitant]
     Dosage: 50 MG, UNK
     Route: 048
     Dates: start: 20150409

REACTIONS (1)
  - Eczema [Recovered/Resolved]

NARRATIVE: CASE EVENT DATE: 20150219
